FAERS Safety Report 24991116 (Version 2)
Quarter: 2025Q2

REPORT INFORMATION
  Report Type: Report from Study
  Country: US (occurrence: US)
  Receive Date: 20250220
  Receipt Date: 20250630
  Transmission Date: 20250716
  Serious: Yes (Death, Hospitalization, Other)
  Sender: BIOGEN
  Company Number: US-BIOGEN-2025BI01301109

PATIENT
  Age: 26 Year
  Sex: Female

DRUGS (16)
  1. SKYCLARYS [Suspect]
     Active Substance: OMAVELOXOLONE
     Indication: Friedreich^s ataxia
     Route: 050
     Dates: start: 20230802
  2. DIFFERIN [Concomitant]
     Active Substance: ADAPALENE
     Indication: Product used for unknown indication
     Route: 050
  3. VITAMIN D3 [Concomitant]
     Active Substance: CHOLECALCIFEROL
     Indication: Product used for unknown indication
     Route: 050
  4. BENZACLIN [Concomitant]
     Active Substance: BENZOYL PEROXIDE\CLINDAMYCIN PHOSPHATE
     Indication: Product used for unknown indication
     Route: 050
  5. VALIUM [Concomitant]
     Active Substance: DIAZEPAM
     Indication: Product used for unknown indication
     Route: 050
  6. NIZORAL [Concomitant]
     Active Substance: KETOCONAZOLE
     Indication: Product used for unknown indication
     Route: 050
  7. TOPROL XL [Concomitant]
     Active Substance: METOPROLOL SUCCINATE
     Indication: Atrial tachycardia
     Route: 050
  8. NADIDE [Concomitant]
     Active Substance: NADIDE
     Indication: Product used for unknown indication
     Route: 050
  9. Anaprox (naproxen sodium) [Concomitant]
     Indication: Product used for unknown indication
     Route: 050
  10. RETIN-A [Concomitant]
     Active Substance: TRETINOIN
     Indication: Product used for unknown indication
     Route: 050
  11. COENZYME Q10 [Concomitant]
     Active Substance: DIETARY SUPPLEMENT\UBIDECARENONE
     Indication: Product used for unknown indication
     Route: 050
  12. KEPPRA [Concomitant]
     Active Substance: LEVETIRACETAM
     Indication: Seizure prophylaxis
     Route: 050
  13. TAMIFLU [Concomitant]
     Active Substance: OSELTAMIVIR PHOSPHATE
     Indication: Influenza
     Route: 050
  14. VANCOMYCIN [Concomitant]
     Active Substance: VANCOMYCIN
     Indication: Pneumonia
     Route: 050
  15. CEFTRIAXONE [Concomitant]
     Active Substance: CEFTRIAXONE
     Indication: Pneumonia
     Route: 050
  16. MEROPENEM [Concomitant]
     Active Substance: MEROPENEM
     Indication: Product used for unknown indication
     Route: 050

REACTIONS (7)
  - Acute respiratory failure [Fatal]
  - Brain oedema [Fatal]
  - Ischaemic stroke [Fatal]
  - Renal artery thrombosis [Unknown]
  - Aortic thrombosis [Unknown]
  - Pulmonary oedema [Unknown]
  - Lactic acidosis [Unknown]

NARRATIVE: CASE EVENT DATE: 20250101
